FAERS Safety Report 10144250 (Version 1)
Quarter: 2020Q3

REPORT INFORMATION
  Report Type: Report from Study
  Country: RU (occurrence: RU)
  Receive Date: 20140430
  Receipt Date: 20140430
  Transmission Date: 20201104
  Serious: Yes (Hospitalization)
  Sender: FDA-Public Use
  Company Number: PHHY2014RU049445

PATIENT
  Age: 49 Year
  Sex: Female

DRUGS (14)
  1. CHLOROPYRAMINE [Concomitant]
     Active Substance: CHLOROPYRAMINE
     Indication: PREMEDICATION
     Dosage: 2 ML, UNK
     Route: 030
  2. OXALIPLATIN. [Suspect]
     Active Substance: OXALIPLATIN
     Dosage: ONCE IN 2 WEEKS
     Route: 042
     Dates: start: 20130801
  3. OXALIPLATIN. [Suspect]
     Active Substance: OXALIPLATIN
     Dosage: 145 MG, 1 IN 2 WK
     Dates: start: 20130815
  4. ONARTUZUMAB. [Suspect]
     Active Substance: ONARTUZUMAB
     Indication: GASTROOESOPHAGEAL CANCER
     Dosage: ONCE IN 2 WEEKS
     Route: 042
     Dates: start: 20130801
  5. ONDANSETRON [Concomitant]
     Active Substance: ONDANSETRON
     Indication: PREMEDICATION
     Dosage: 8 MG, UNK
     Route: 042
     Dates: start: 20130801
  6. IRON POLYMALTOSE [Concomitant]
     Active Substance: IRON POLYMALTOSE
     Indication: ANAEMIA
     Dosage: 2 ML, UNK
     Route: 030
     Dates: start: 20130730, end: 20130805
  7. IRON POLYMALTOSE [Concomitant]
     Active Substance: IRON POLYMALTOSE
     Dosage: 2 ML, UNK
     Route: 030
     Dates: start: 20130813, end: 20130819
  8. FOLINIC ACID [Suspect]
     Active Substance: LEUCOVORIN
     Dosage: 684 MG, UNK
     Dates: start: 20130815
  9. 5?FLUOROURACIL [Suspect]
     Active Substance: FLUOROURACIL
     Dosage: 4104 MG, 1 IN 2 WEEK
     Route: 041
     Dates: start: 20130815
  10. DEXAMETHASONE. [Concomitant]
     Active Substance: DEXAMETHASONE
     Indication: PREMEDICATION
     Dosage: 8 MG, UNK
     Route: 030
     Dates: start: 20130801
  11. 5?FLUOROURACIL [Suspect]
     Active Substance: FLUOROURACIL
     Indication: GASTROOESOPHAGEAL CANCER
     Dosage: UNK UKN, UNK
     Route: 042
     Dates: start: 20130801
  12. 5?FLUOROURACIL [Suspect]
     Active Substance: FLUOROURACIL
     Dosage: 684 MG, BOLUS, 1 IN 2 WEEK
     Dates: start: 20130815
  13. FOLINIC ACID [Suspect]
     Active Substance: LEUCOVORIN
     Indication: GASTROOESOPHAGEAL CANCER
     Dosage: ONCE IN 2 WEEKS
     Route: 042
     Dates: start: 20130801
  14. ONARTUZUMAB. [Suspect]
     Active Substance: ONARTUZUMAB
     Dosage: ONCE IN 2 WEEKS
     Route: 042
     Dates: start: 20130815

REACTIONS (2)
  - Neutropenia [Recovered/Resolved]
  - Diarrhoea [Recovered/Resolved]

NARRATIVE: CASE EVENT DATE: 20130825
